FAERS Safety Report 22285013 (Version 1)
Quarter: 2023Q2

REPORT INFORMATION
  Report Type: Spontaneous
  Country: US (occurrence: None)
  Receive Date: 20230503
  Receipt Date: 20230503
  Transmission Date: 20230721
  Serious: Yes (Other)
  Sender: FDA-Public Use
  Company Number: None

PATIENT
  Age: 68 Year
  Sex: Female

DRUGS (25)
  1. OPSUMIT [Suspect]
     Active Substance: MACITENTAN
     Indication: Pulmonary arterial hypertension
     Dosage: FREQUENCY : DAILY;?
     Route: 048
     Dates: start: 20160802
  2. SILDENAFIL [Concomitant]
     Active Substance: SILDENAFIL
  3. EPOPROSTENOL [Concomitant]
     Active Substance: EPOPROSTENOL
  4. AMIODARONE [Concomitant]
     Active Substance: AMIODARONE
  5. WARFARIN [Concomitant]
     Active Substance: WARFARIN
  6. COLCHICINE [Concomitant]
     Active Substance: COLCHICINE
  7. WARFARIN [Concomitant]
     Active Substance: WARFARIN
  8. COLCHICINE [Concomitant]
     Active Substance: COLCHICINE
  9. LOPERAMIDE [Concomitant]
     Active Substance: LOPERAMIDE
  10. PANTOPRAZOLE [Concomitant]
     Active Substance: PANTOPRAZOLE
  11. ALLOPURINOL [Concomitant]
     Active Substance: ALLOPURINOL
  12. SPIRONOLACTONE [Concomitant]
     Active Substance: SPIRONOLACTONE
  13. TORSEMIDE [Concomitant]
     Active Substance: TORSEMIDE
  14. LEVOTHYROXINE [Concomitant]
     Active Substance: LEVOTHYROXINE
  15. FAMOTIDINE [Concomitant]
     Active Substance: FAMOTIDINE
  16. TRAZODONE [Concomitant]
     Active Substance: TRAZODONE HYDROCHLORIDE
  17. DIGOXIN [Concomitant]
     Active Substance: DIGOXIN
  18. MELATONIN [Concomitant]
     Active Substance: MELATONIN
  19. LIDOCAINE PATCH [Concomitant]
     Active Substance: LIDOCAINE
  20. Diclofenac top gel [Concomitant]
  21. PERIDEX [Concomitant]
     Active Substance: CHLORHEXIDINE GLUCONATE
  22. VITAMIN D3 [Concomitant]
     Active Substance: CHOLECALCIFEROL
  23. BENEFIBER [Concomitant]
     Active Substance: STARCH, WHEAT
  24. CALCIUM CARBONATE [Concomitant]
     Active Substance: CALCIUM CARBONATE
  25. Vitamine B-12 [Concomitant]

REACTIONS (5)
  - Heart rate decreased [None]
  - Dizziness [None]
  - Headache [None]
  - Nausea [None]
  - Blood creatinine increased [None]

NARRATIVE: CASE EVENT DATE: 20230421
